FAERS Safety Report 6792854-9 (Version None)
Quarter: 2010Q2

REPORT INFORMATION
  Report Type: 
  Country: None (occurrence: None)
  Receive Date: 20100624
  Receipt Date: 20100617
  Transmission Date: 20101027
  Serious: Yes (Death, Hospitalization, Other)
  Sender: FDA-Public Use
  Company Number: US-AMGEN-QUU400082

PATIENT
  Sex: Male
  Weight: 60 kg

DRUGS (17)
  1. NPLATE [Suspect]
     Indication: IDIOPATHIC THROMBOCYTOPENIC PURPURA
     Route: 058
     Dates: start: 20090606, end: 20090701
  2. PREDNISONE [Concomitant]
  3. MS CONTIN [Concomitant]
  4. CLOFARABINE [Concomitant]
  5. UNSPECIFIED MEDICATION [Concomitant]
  6. NEXIUM [Concomitant]
  7. NOVOLOG [Concomitant]
  8. SENOKOT [Concomitant]
  9. MAGNESIUM OXIDE [Concomitant]
  10. FOLIC ACID [Concomitant]
  11. OYSTER SHELL CALCIUM [Concomitant]
  12. FOSAMAX [Concomitant]
  13. ACTIGALL [Concomitant]
  14. K-DUR [Concomitant]
  15. MARINOL [Concomitant]
  16. UNSPECIFIED OPHTHALMIC PREPARATION [Concomitant]
  17. RESTASIS [Concomitant]
     Route: 047

REACTIONS (21)
  - ACUTE GRAFT VERSUS HOST DISEASE IN LIVER [None]
  - ACUTE MYELOID LEUKAEMIA [None]
  - ALLOGENIC BONE MARROW TRANSPLANTATION THERAPY [None]
  - ANAEMIA MACROCYTIC [None]
  - ASCITES [None]
  - ASTHENIA [None]
  - BACK PAIN [None]
  - BILIARY DILATATION [None]
  - CARDIO-RESPIRATORY ARREST [None]
  - COLON NEOPLASM [None]
  - DRUG INEFFECTIVE [None]
  - DUODENAL NEOPLASM [None]
  - ESCHERICHIA SEPSIS [None]
  - EYE DISORDER [None]
  - LEUKAEMIC INFILTRATION [None]
  - LEUKAEMIC INFILTRATION PULMONARY [None]
  - LICHENIFICATION [None]
  - PANCREATIC DUCT DILATATION [None]
  - SOFT TISSUE NEOPLASM [None]
  - THROMBOCYTOPENIA [None]
  - VARICES OESOPHAGEAL [None]
